FAERS Safety Report 23903594 (Version 1)
Quarter: 2024Q2

REPORT INFORMATION
  Report Type: Spontaneous
  Country: JP (occurrence: JP)
  Receive Date: 20240527
  Receipt Date: 20240527
  Transmission Date: 20240715
  Serious: Yes (Hospitalization, Other)
  Sender: FDA-Public Use
  Company Number: JP-TEVA-VS-3201241

PATIENT
  Age: 76 Year
  Sex: Female

DRUGS (2)
  1. LANSOPRAZOLE [Suspect]
     Active Substance: LANSOPRAZOLE
     Indication: Product used for unknown indication
     Dosage: 02/20 04/08?DOSAGE IS UNKNOWN
     Route: 048
  2. LANSOPRAZOLE [Suspect]
     Active Substance: LANSOPRAZOLE
     Indication: Product used for unknown indication
     Dosage: 02/20 04/08?DOSAGE IS UNKNOWN
     Route: 048

REACTIONS (2)
  - Diarrhoea [Recovered/Resolved]
  - Gait inability [Recovered/Resolved]
